FAERS Safety Report 12784208 (Version 2)
Quarter: 2016Q4

REPORT INFORMATION
  Report Type: Spontaneous
  Country: UY (occurrence: UY)
  Receive Date: 20160927
  Receipt Date: 20161010
  Transmission Date: 20170207
  Serious: Yes (Death, Hospitalization, Other)
  Sender: FDA-Public Use
  Company Number: UY-BAYER-2016-186804

PATIENT
  Age: 71 Year
  Sex: Female

DRUGS (1)
  1. ADEMPAS [Suspect]
     Active Substance: RIOCIGUAT
     Indication: PULMONARY HYPERTENSION
     Dosage: 2.5 MG, Q8HR
     Route: 048
     Dates: start: 201507, end: 201609

REACTIONS (4)
  - Respiratory failure [None]
  - Leukaemia [Fatal]
  - Pneumonia [None]
  - Thrombocytosis [Unknown]

NARRATIVE: CASE EVENT DATE: 201609
